FAERS Safety Report 8582843-6 (Version None)
Quarter: 2012Q3

REPORT INFORMATION
  Report Type: 
  Country: None (occurrence: None)
  Receive Date: 20120809
  Receipt Date: 20100901
  Transmission Date: 20120928
  Serious: Yes (Death)
  Sender: FDA-Public Use
  Company Number: AU-ROCHE-725042

PATIENT
  Sex: Female
  Weight: 92.9 kg

DRUGS (4)
  1. TAMIFLU [Suspect]
     Indication: INFLUENZA
     Route: 042
  2. VANCOMYCIN [Concomitant]
     Route: 042
  3. PIPERACILLIN AND TAZOBACTAM [Concomitant]
     Route: 042
  4. CIPROFLOXACIN [Concomitant]
     Route: 042

REACTIONS (1)
  - DEATH [None]
